FAERS Safety Report 9010959 (Version 2)
Quarter: 2014Q1

REPORT INFORMATION
  Report Type: Spontaneous
  Country: PT (occurrence: PT)
  Receive Date: 20130109
  Receipt Date: 20140210
  Transmission Date: 20141002
  Serious: Yes (Disabling, Other)
  Sender: FDA-Public Use
  Company Number: PT-TEVA-379057ISR

PATIENT
  Age: 49 Year
  Sex: Male
  Weight: 80 kg

DRUGS (2)
  1. CIPROFLOXACINA 500 MG RATIOPHARM [Suspect]
     Indication: PROSTATITIS
     Dosage: 500 MILLIGRAM DAILY; 1
     Route: 048
     Dates: start: 201205, end: 201207
  2. SYMBICORT TURBOHALER [Concomitant]
     Indication: ASTHMA
     Dates: start: 2007

REACTIONS (13)
  - Tendonitis [Not Recovered/Not Resolved]
  - Paraesthesia [Not Recovered/Not Resolved]
  - Gait disturbance [Not Recovered/Not Resolved]
  - Erectile dysfunction [Not Recovered/Not Resolved]
  - Muscle rigidity [Not Recovered/Not Resolved]
  - Arthralgia [Not Recovered/Not Resolved]
  - Burning sensation [Not Recovered/Not Resolved]
  - Muscle atrophy [Not Recovered/Not Resolved]
  - Muscle contractions involuntary [Not Recovered/Not Resolved]
  - Myalgia [Not Recovered/Not Resolved]
  - Tremor [Not Recovered/Not Resolved]
  - Neurological symptom [Not Recovered/Not Resolved]
  - Orthostatic hypotension [Not Recovered/Not Resolved]
